FAERS Safety Report 5209395-2 (Version None)
Quarter: 2006Q4

REPORT INFORMATION
  Report Type: 
  Country: None (occurrence: None)
  Receive Date: 20061101
  Receipt Date: 20060811
  Transmission Date: 20070319
  Serious: No
  Sender: FDA-Public Use
  Company Number: 2006PV019350

PATIENT
  Sex: Female

DRUGS (2)
  1. SYMLIN [Suspect]
     Indication: DIABETES MELLITUS
     Dosage: 30 MCG; BID; SC;  15 MCG; BID; SC
     Route: 058
     Dates: end: 20060726
  2. SYMLIN [Suspect]
     Indication: DIABETES MELLITUS
     Dosage: 30 MCG; BID; SC;  15 MCG; BID; SC
     Route: 058
     Dates: start: 20060727

REACTIONS (5)
  - ANOREXIA [None]
  - BLOOD GLUCOSE DECREASED [None]
  - BLOOD GLUCOSE INCREASED [None]
  - NAUSEA [None]
  - VOMITING [None]
